FAERS Safety Report 6039638-7 (Version None)
Quarter: 2009Q1

REPORT INFORMATION
  Report Type: 
  Country: None (occurrence: None)
  Receive Date: 20090116
  Receipt Date: 20090113
  Transmission Date: 20090719
  Serious: Yes (Death)
  Sender: FDA-Public Use
  Company Number: US-BRISTOL-MYERS SQUIBB COMPANY-14468706

PATIENT
  Age: 54 Year
  Sex: Male

DRUGS (9)
  1. METFORMIN HCL [Suspect]
  2. TRAZODONE HCL [Suspect]
  3. FLUOXETINE [Suspect]
  4. VENLAFAXINE HCL [Suspect]
  5. ALPRAZOLAM [Suspect]
  6. GABAPENTIN [Suspect]
  7. POTASSIUM CHLORIDE [Suspect]
  8. FUROSEMIDE [Suspect]
  9. GLIMEPIRIDE [Suspect]

REACTIONS (3)
  - CARDIAC ARREST [None]
  - COMPLETED SUICIDE [None]
  - RESPIRATORY ARREST [None]
